FAERS Safety Report 12404712 (Version 5)
Quarter: 2016Q3

REPORT INFORMATION
  Report Type: Spontaneous
  Country: AR (occurrence: AR)
  Receive Date: 20160525
  Receipt Date: 20160822
  Transmission Date: 20161109
  Serious: Yes (Hospitalization, Other)
  Sender: FDA-Public Use
  Company Number: AR-GLAXOSMITHKLINE-AR2016GSK073485

PATIENT
  Age: 36 Year
  Sex: Female

DRUGS (1)
  1. BENLYSTA [Suspect]
     Active Substance: BELIMUMAB
     Indication: SYSTEMIC LUPUS ERYTHEMATOSUS
     Dosage: 400 MG, CYC
     Dates: start: 2013

REACTIONS (21)
  - Glomerulosclerosis [Unknown]
  - Thrombocytopenia [Unknown]
  - Alopecia [Unknown]
  - Parotid gland enlargement [Unknown]
  - Candida infection [Unknown]
  - Hypocomplementaemia [Unknown]
  - Proteinuria [Unknown]
  - Polyarthritis [Unknown]
  - Dyspnoea [Unknown]
  - Mouth ulceration [Unknown]
  - Lupus nephritis [Unknown]
  - Pneumonia [Unknown]
  - Urticaria [Unknown]
  - Renal failure [Unknown]
  - Lymphadenopathy [Unknown]
  - Leukopenia [Unknown]
  - Pyrexia [Unknown]
  - Dry skin [Unknown]
  - Arthralgia [Unknown]
  - Oral pain [Unknown]
  - Oedema peripheral [Unknown]

NARRATIVE: CASE EVENT DATE: 201412
